FAERS Safety Report 5988852-5 (Version None)
Quarter: 2008Q4

REPORT INFORMATION
  Report Type: 
  Country: None (occurrence: None)
  Receive Date: 20081210
  Receipt Date: 20071229
  Transmission Date: 20090506
  Serious: Yes (Other)
  Sender: FDA-Public Use
  Company Number: US-AMGEN-US258563

PATIENT
  Sex: Female

DRUGS (6)
  1. ENBREL [Suspect]
     Indication: RHEUMATOID ARTHRITIS
     Route: 058
     Dates: start: 20060321
  2. METHOTREXATE [Concomitant]
     Route: 058
     Dates: start: 20050901
  3. PLAQUENIL [Concomitant]
     Route: 065
     Dates: start: 20050101
  4. WELLBUTRIN [Concomitant]
     Route: 065
  5. LEXAPRO [Concomitant]
     Route: 065
  6. ULTRAM [Concomitant]
     Route: 065

REACTIONS (3)
  - CONVULSION [None]
  - IMPAIRED HEALING [None]
  - THERMAL BURN [None]
